FAERS Safety Report 9269223 (Version 2)
Quarter: 2017Q2

REPORT INFORMATION
  Report Type: Spontaneous
  Country: US (occurrence: US)
  Receive Date: 20130503
  Receipt Date: 20170509
  Transmission Date: 20170830
  Serious: Yes (Death, Hospitalization)
  Sender: FDA-Public Use
  Company Number: US-PFIZER INC-2013134400

PATIENT
  Age: 80 Year
  Sex: Female
  Weight: 58.96 kg

DRUGS (3)
  1. TYVASO [Concomitant]
     Active Substance: TREPROSTINIL
     Indication: PULMONARY HYPERTENSION
     Dosage: UNK, 4X/DAY (INHALATION-5 BREATHS 4 TIMES A DAY)
     Route: 055
  2. REVATIO [Suspect]
     Active Substance: SILDENAFIL CITRATE
     Indication: PULMONARY HYPERTENSION
     Dosage: 40 MG, 3X/DAY
     Dates: start: 20120614
  3. REVATIO [Suspect]
     Active Substance: SILDENAFIL CITRATE
     Dosage: 20 MG, 3X/DAY (EVERY 8 HOURS)
     Route: 048

REACTIONS (4)
  - Product use issue [Unknown]
  - Epistaxis [Unknown]
  - Dyspnoea [Fatal]
  - Cardiac failure [Fatal]

NARRATIVE: CASE EVENT DATE: 20120614
